FAERS Safety Report 11562468 (Version 2)
Quarter: 2015Q4

REPORT INFORMATION
  Report Type: Spontaneous
  Country: US (occurrence: US)
  Receive Date: 20150928
  Receipt Date: 20151109
  Transmission Date: 20160304
  Serious: Yes (Death, Hospitalization)
  Sender: FDA-Public Use
  Company Number: US-LPDUSPRD-20150713

PATIENT
  Age: 24 Year
  Sex: Female

DRUGS (2)
  1. KETOROLAC TROMETHAMINE INJECTION, USP (0601-25) [Suspect]
     Active Substance: KETOROLAC TROMETHAMINE
     Dosage: 30 MG, 2 DOSES
     Route: 051
     Dates: start: 20100707, end: 20100707
  2. MOTRIN [Concomitant]
     Active Substance: IBUPROFEN
     Dosage: DOSE NOT PROVIDED
     Route: 048

REACTIONS (2)
  - Stevens-Johnson syndrome [Fatal]
  - Toxic epidermal necrolysis [Fatal]

NARRATIVE: CASE EVENT DATE: 20100707
